FAERS Safety Report 8312612-3 (Version None)
Quarter: 2012Q2

REPORT INFORMATION
  Report Type: 
  Country: None (occurrence: None)
  Receive Date: 20120424
  Receipt Date: 20120417
  Transmission Date: 20120825
  Serious: Yes (Hospitalization)
  Sender: FDA-Public Use
  Company Number: TPA2012A02185

PATIENT
  Age: 65 Year
  Sex: Male
  Weight: 127.4608 kg

DRUGS (7)
  1. ACTOS [Suspect]
     Indication: DIABETES MELLITUS
     Dosage: 45 MG, 1 IN 1 D, PER ORAL
     Route: 048
     Dates: start: 20030101
  2. ASPIRIN [Concomitant]
  3. LISINOPRIL [Concomitant]
  4. VEGF TRAP - EYE (OCULAR VASCULAR DISORDER AGENTS) [Suspect]
     Indication: DIABETIC RETINAL OEDEMA
     Dates: start: 20111130
  5. MECLIZINE [Concomitant]
  6. METFORMIN HCL [Concomitant]
  7. GABAPENTIN [Concomitant]

REACTIONS (2)
  - OEDEMA PERIPHERAL [None]
  - JOINT SWELLING [None]
